FAERS Safety Report 22281337 (Version 1)
Quarter: 2023Q2

REPORT INFORMATION
  Report Type: Spontaneous
  Country: US (occurrence: US)
  Receive Date: 20230504
  Receipt Date: 20230504
  Transmission Date: 20230722
  Serious: No
  Sender: FDA-Public Use
  Company Number: US-Accord-301100

PATIENT
  Sex: Female

DRUGS (1)
  1. FLUOROURACIL [Suspect]
     Active Substance: FLUOROURACIL
     Indication: Rash macular
     Dosage: APPLY TO AFFECTED AREA NIGHTLY FOR 3 WEEKS; USED CREAM 1 TIME
     Route: 065

REACTIONS (1)
  - Skin hypopigmentation [Unknown]
